FAERS Safety Report 10086860 (Version 3)
Quarter: 2014Q2

REPORT INFORMATION
  Report Type: Spontaneous
  Country: US (occurrence: US)
  Receive Date: 20140418
  Receipt Date: 20140506
  Transmission Date: 20141212
  Serious: Yes (Hospitalization)
  Sender: FDA-Public Use
  Company Number: US-SA-CART-1000093

PATIENT
  Age: 39 Year
  Sex: Male

DRUGS (1)
  1. CARTICEL [Suspect]
     Indication: CARTILAGE INJURY
     Dosage: UNK (RIGHT KNEE, TWO VIALS)
     Route: 065
     Dates: start: 20111209

REACTIONS (2)
  - Septic shock [Unknown]
  - Arthritis infective [Unknown]
